FAERS Safety Report 9977373 (Version 1)
Quarter: 2014Q1

REPORT INFORMATION
  Report Type: Report from Study
  Country: US (occurrence: US)
  Receive Date: 20140306
  Receipt Date: 20140306
  Transmission Date: 20141002
  Serious: No
  Sender: FDA-Public Use
  Company Number: US-ABBVIE-13P-163-1162397-00

PATIENT
  Age: 71 Year
  Sex: Female
  Weight: 81.72 kg

DRUGS (20)
  1. HUMIRA [Suspect]
     Indication: CROHN^S DISEASE
     Dates: start: 2008
  2. IMODIUM [Concomitant]
     Indication: DIARRHOEA
  3. DICYCLOMINE [Concomitant]
     Indication: CROHN^S DISEASE
  4. LOSARTAN [Concomitant]
     Indication: BLOOD PRESSURE
  5. SYNTHROID [Concomitant]
     Indication: HYPOTHYROIDISM
  6. OMEPRAZOLE [Concomitant]
     Indication: GASTROOESOPHAGEAL REFLUX DISEASE
  7. ASPIRIN [Concomitant]
     Indication: CARDIOVASCULAR EVENT PROPHYLAXIS
  8. ASPIRIN [Concomitant]
     Indication: ARTHRITIS
  9. ASACOL [Concomitant]
     Indication: CROHN^S DISEASE
  10. SULFATOL [Concomitant]
     Indication: ROSACEA
  11. MESALAMINE [Concomitant]
     Indication: CROHN^S DISEASE
  12. TYLENOL [Concomitant]
     Indication: ARTHRALGIA
  13. METHOCARBAMOL [Concomitant]
     Indication: INTERVERTEBRAL DISC PROTRUSION
  14. TRAMADOL [Concomitant]
     Indication: INTERVERTEBRAL DISC PROTRUSION
  15. BALSALAZIDE [Concomitant]
     Indication: CROHN^S DISEASE
  16. SYMBICORT [Concomitant]
     Indication: ASTHMA
  17. ALBUTEROL [Concomitant]
     Indication: ASTHMA
  18. DONEPEZIL [Concomitant]
     Indication: MEMORY IMPAIRMENT
  19. ESCITALOPRAM [Concomitant]
     Indication: ANTIDEPRESSANT THERAPY
  20. SINGULAIR [Concomitant]
     Indication: ASTHMA

REACTIONS (4)
  - Eye discharge [Recovered/Resolved]
  - Chills [Recovered/Resolved]
  - Cough [Recovered/Resolved]
  - Pyrexia [Recovered/Resolved]
